FAERS Safety Report 6412893-7 (Version None)
Quarter: 2009Q4

REPORT INFORMATION
  Report Type: 
  Country: None (occurrence: None)
  Receive Date: 20091023
  Receipt Date: 20091019
  Transmission Date: 20100525
  Serious: Yes (Death, Hospitalization)
  Sender: FDA-Public Use
  Company Number: PHHY2009BR45116

PATIENT
  Sex: Female

DRUGS (1)
  1. FORASEQ [Suspect]

REACTIONS (2)
  - MULTI-ORGAN FAILURE [None]
  - RESPIRATORY DISORDER [None]
